FAERS Safety Report 10997261 (Version 1)
Quarter: 2015Q2

REPORT INFORMATION
  Report Type: Spontaneous
  Country: US (occurrence: US)
  Receive Date: 20150408
  Receipt Date: 20150408
  Transmission Date: 20150821
  Serious: No
  Sender: FDA-Public Use
  Company Number: US-BANPHARM-20142474

PATIENT
  Age: 55 Year
  Sex: Female
  Weight: 99.79 kg

DRUGS (3)
  1. ARMOR [Concomitant]
  2. GENERIC LOW DOSE ASPIRIN [Concomitant]
  3. ALEVE [Suspect]
     Active Substance: NAPROXEN SODIUM
     Indication: PAIN
     Dosage: 1 DF, PRN,
     Route: 048
     Dates: start: 201310, end: 201403

REACTIONS (2)
  - Dyspepsia [Recovered/Resolved]
  - Malaise [Recovered/Resolved]

NARRATIVE: CASE EVENT DATE: 201310
